FAERS Safety Report 4413068-3 (Version None)
Quarter: 2004Q3

REPORT INFORMATION
  Report Type: 
  Country: None (occurrence: None)
  Receive Date: 20040802
  Receipt Date: 20040802
  Transmission Date: 20050211
  Serious: Yes (Hospitalization)
  Sender: FDA-Public Use
  Company Number: None

PATIENT
  Age: 21 Year
  Sex: Male
  Weight: 77.1115 kg

DRUGS (2)
  1. BUPROPION HCL [Suspect]
     Indication: DEPRESSION
     Dosage: 100 MG BID ORAL
     Route: 048
     Dates: start: 20040201, end: 20040723
  2. BUPROPION HCL [Suspect]
     Indication: MENTAL DISORDER
     Dosage: 100 MG BID ORAL
     Route: 048
     Dates: start: 20040201, end: 20040723

REACTIONS (1)
  - CONVULSION [None]
